FAERS Safety Report 10956486 (Version 3)
Quarter: 2015Q2

REPORT INFORMATION
  Report Type: Spontaneous
  Country: US (occurrence: US)
  Receive Date: 20150326
  Receipt Date: 20150420
  Transmission Date: 20150821
  Serious: Yes (Death, Life-Threatening, Hospitalization, Disabling)
  Sender: FDA-Public Use
  Company Number: US-OTSUKA-US-2015-11374

PATIENT

DRUGS (8)
  1. HYDROCHLOROTHIAZIDE. [Concomitant]
     Active Substance: HYDROCHLOROTHIAZIDE
     Indication: HYPERTENSION
     Dosage: 25 MG MILLIGRAM(S), QD
     Route: 048
     Dates: start: 2008, end: 20150202
  2. DACOGEN [Suspect]
     Active Substance: DECITABINE
     Indication: MYELOID LEUKAEMIA
     Dosage: 20 MG/M2, QD
     Route: 042
     Dates: start: 20150112, end: 20150116
  3. PREMARIN [Concomitant]
     Active Substance: ESTROGENS, CONJUGATED
     Indication: HYSTERECTOMY
     Dosage: 1.25 MG MILLIGRAM(S), QD
     Route: 048
     Dates: start: 1980, end: 20150202
  4. ALLOPURINOL. [Concomitant]
     Active Substance: ALLOPURINOL
     Indication: HYPERTENSION
     Dosage: 300 MG MILLIGRAM(S), UNKNOWN
     Route: 048
     Dates: start: 20150105, end: 20150202
  5. VANCOCIN [Concomitant]
     Active Substance: VANCOMYCIN HYDROCHLORIDE
     Indication: LUNG INFECTION
  6. PREMARIN [Concomitant]
     Active Substance: ESTROGENS, CONJUGATED
     Indication: MENORRHAGIA
  7. LISINOPRIL. [Concomitant]
     Active Substance: LISINOPRIL
     Indication: HYPERTENSION
     Dosage: 10 MG MILLIGRAM(S), QD
     Dates: start: 2008, end: 20150202
  8. VANCOCIN [Concomitant]
     Active Substance: VANCOMYCIN HYDROCHLORIDE
     Indication: COLITIS
     Dosage: 300 MG MILLIGRAM(S), UNKNOWN
     Route: 065
     Dates: start: 20150114

REACTIONS (5)
  - Respiratory failure [Unknown]
  - Respiratory failure [Fatal]
  - Sepsis [Unknown]
  - Lung infection [Unknown]
  - Pneumonitis chemical [Fatal]

NARRATIVE: CASE EVENT DATE: 20150126
